FAERS Safety Report 12632323 (Version 3)
Quarter: 2016Q3

REPORT INFORMATION
  Report Type: Spontaneous
  Country: US (occurrence: US)
  Receive Date: 20160808
  Receipt Date: 20160825
  Transmission Date: 20161109
  Serious: No
  Sender: FDA-Public Use
  Company Number: US-BEH-2016062516

PATIENT
  Age: 56 Year
  Sex: Female
  Weight: 82.1 kg

DRUGS (22)
  1. ARMOUR THYROID [Concomitant]
     Active Substance: THYROID, PORCINE
  2. PROVIGIL [Concomitant]
     Active Substance: MODAFINIL
  3. CYCLOBENZAPRINE [Concomitant]
     Active Substance: CYCLOBENZAPRINE
  4. EPIPEN [Concomitant]
     Active Substance: EPINEPHRINE
  5. PROGESTERONE. [Concomitant]
     Active Substance: PROGESTERONE
  6. BOTOX [Concomitant]
     Active Substance: ONABOTULINUMTOXINA
  7. PERCOCET [Concomitant]
     Active Substance: ACETAMINOPHEN\OXYCODONE HYDROCHLORIDE
  8. LIPITOR [Concomitant]
     Active Substance: ATORVASTATIN CALCIUM
  9. HIZENTRA [Suspect]
     Active Substance: HUMAN IMMUNOGLOBULIN G
     Indication: MIGRAINE
     Dosage: 6 G, QW
     Route: 058
  10. DIAZEPAM. [Concomitant]
     Active Substance: DIAZEPAM
  11. DIPHENHYDRAMINE. [Concomitant]
     Active Substance: DIPHENHYDRAMINE
  12. OMEPRAZOLE. [Concomitant]
     Active Substance: OMEPRAZOLE
  13. PROMETRIUM [Concomitant]
     Active Substance: PROGESTERONE
  14. ATENOLOL-CHLORTHALIDONE [Concomitant]
  15. TESTOSTERONE. [Concomitant]
     Active Substance: TESTOSTERONE
  16. MORPHINE SULFATE. [Concomitant]
     Active Substance: MORPHINE SULFATE
  17. PROAIR HFA [Concomitant]
     Active Substance: ALBUTEROL SULFATE
  18. DEPLIN [Concomitant]
     Active Substance: LEVOMEFOLATE CALCIUM
  19. LIDOCAINE/PRILOCAINE [Concomitant]
     Active Substance: LIDOCAINE\PRILOCAINE
  20. ACETAMINOPHEN. [Concomitant]
     Active Substance: ACETAMINOPHEN
  21. VIVELLE-DOT [Concomitant]
     Active Substance: ESTRADIOL
  22. WELLBUTRIN [Concomitant]
     Active Substance: BUPROPION HYDROCHLORIDE

REACTIONS (2)
  - Sinusitis [Unknown]
  - Fatigue [Unknown]

NARRATIVE: CASE EVENT DATE: 201602
